FAERS Safety Report 7384858-2 (Version None)
Quarter: 2011Q1

REPORT INFORMATION
  Report Type: 
  Country: None (occurrence: None)
  Receive Date: 20110330
  Receipt Date: 20110316
  Transmission Date: 20110831
  Serious: Yes (Other)
  Sender: FDA-Public Use
  Company Number: US-JNJFOC-20110307485

PATIENT
  Sex: Male
  Weight: 99.79 kg

DRUGS (4)
  1. REMICADE [Suspect]
     Indication: CROHN'S DISEASE
     Route: 042
  2. APRISO [Concomitant]
     Indication: CROHN'S DISEASE
     Route: 048
  3. REMICADE [Suspect]
     Route: 042
  4. REMICADE [Suspect]
     Route: 042

REACTIONS (6)
  - HERPES ZOSTER [None]
  - VERTIGO [None]
  - THERAPEUTIC RESPONSE DECREASED [None]
  - VISUAL ACUITY REDUCED [None]
  - COUGH [None]
  - ADVERSE DRUG REACTION [None]
